FAERS Safety Report 8368003-2 (Version None)
Quarter: 2012Q2

REPORT INFORMATION
  Report Type: 
  Country: None (occurrence: None)
  Receive Date: 20120517
  Receipt Date: 20120509
  Transmission Date: 20120825
  Serious: Yes (Death)
  Sender: FDA-Public Use
  Company Number: TW-BAXTER-2012BAX005418

PATIENT
  Sex: Male

DRUGS (4)
  1. NUTRINEAL PD4 WITH 1.1% AMINO ACID SOLUTION [Suspect]
     Route: 033
  2. DIANEAL PD-2 W/ DEXTROSE 2.5% [Suspect]
     Route: 033
  3. DIANEAL PD-2 W/ DEXTROSE 1.5% [Suspect]
     Route: 033
  4. EXTRANEAL [Suspect]
     Route: 033

REACTIONS (1)
  - DEATH [None]
